FAERS Safety Report 19808682 (Version 1)
Quarter: 2021Q3

REPORT INFORMATION
  Report Type: Spontaneous
  Country: DE (occurrence: DE)
  Receive Date: 20210908
  Receipt Date: 20210908
  Transmission Date: 20211014
  Serious: Yes (Life-Threatening, Hospitalization)
  Sender: FDA-Public Use
  Company Number: NVSC2021DE202395

PATIENT
  Age: 49 Year
  Sex: Male

DRUGS (3)
  1. ACETYLSALICYLIC ACID [Suspect]
     Active Substance: ASPIRIN
     Indication: ATRIAL FIBRILLATION
     Dosage: 100 MG/DAY (LONG TERM MEDICATION)
     Route: 065
  2. EDOXABAN [Suspect]
     Active Substance: EDOXABAN TOSYLATE
     Indication: ATRIAL FIBRILLATION
     Dosage: 60 MG/DAY
     Route: 065
  3. EDOXABAN [Suspect]
     Active Substance: EDOXABAN TOSYLATE
     Dosage: UNK, UNKNOWN
     Route: 065

REACTIONS (4)
  - Tachyarrhythmia [Recovered/Resolved]
  - Respiratory failure [Recovered/Resolved]
  - Shock haemorrhagic [Recovered/Resolved]
  - Epistaxis [Recovered/Resolved]
